FAERS Safety Report 20560047 (Version 2)
Quarter: 2022Q2

REPORT INFORMATION
  Report Type: Spontaneous
  Country: US (occurrence: US)
  Receive Date: 20220307
  Receipt Date: 20220603
  Transmission Date: 20220720
  Serious: Yes (Other)
  Sender: FDA-Public Use
  Company Number: US-PFIZER INC-202200318829

PATIENT
  Sex: Male

DRUGS (3)
  1. METHYLPREDNISOLONE ACETATE [Suspect]
     Active Substance: METHYLPREDNISOLONE ACETATE
     Indication: Skin lesion
     Dosage: 16 MG, DAILY
  2. METHYLPREDNISOLONE ACETATE [Suspect]
     Active Substance: METHYLPREDNISOLONE ACETATE
     Indication: Polyarthritis
  3. METHYLPREDNISOLONE ACETATE [Suspect]
     Active Substance: METHYLPREDNISOLONE ACETATE
     Indication: Cutaneous sarcoidosis

REACTIONS (4)
  - Drug ineffective [Recovering/Resolving]
  - Myopathy [Recovering/Resolving]
  - Osteoporotic fracture [Recovering/Resolving]
  - Osteonecrosis [Recovering/Resolving]
